FAERS Safety Report 5247804-3 (Version None)
Quarter: 2007Q1

REPORT INFORMATION
  Report Type: 
  Country: None (occurrence: None)
  Receive Date: 20070227
  Receipt Date: 20070216
  Transmission Date: 20070707
  Serious: Yes (Hospitalization)
  Sender: FDA-Public Use
  Company Number: 2007AP00713

PATIENT
  Age: 90 Year

DRUGS (1)
  1. MEROPENEM [Suspect]
     Indication: PNEUMONIA
     Route: 041
     Dates: start: 20061206, end: 20061211

REACTIONS (1)
  - HEPATIC FUNCTION ABNORMAL [None]
